FAERS Safety Report 13572970 (Version 1)
Quarter: 2017Q2

REPORT INFORMATION
  Report Type: Report from Study
  Country: None (occurrence: US)
  Receive Date: 20170523
  Receipt Date: 20170523
  Transmission Date: 20170830
  Serious: Yes (Hospitalization)
  Sender: FDA-Public Use
  Company Number: US-ABBVIE-16K-163-1823082-00

PATIENT
  Sex: Female

DRUGS (2)
  1. HUMIRA [Suspect]
     Active Substance: ADALIMUMAB
     Route: 058
  2. HUMIRA [Suspect]
     Active Substance: ADALIMUMAB
     Indication: RHEUMATOID ARTHRITIS
     Route: 058
     Dates: start: 20151008, end: 201611

REACTIONS (8)
  - Wound dehiscence [Not Recovered/Not Resolved]
  - Wound [Recovered/Resolved]
  - Dermal cyst [Recovering/Resolving]
  - Skin disorder [Unknown]
  - Rheumatoid arthritis [Unknown]
  - Hyperkeratosis [Recovering/Resolving]
  - Abscess limb [Recovering/Resolving]
  - Alopecia [Unknown]

NARRATIVE: CASE EVENT DATE: 2016
